FAERS Safety Report 4899096-2 (Version None)
Quarter: 2006Q1

REPORT INFORMATION
  Report Type: 
  Country: None (occurrence: None)
  Receive Date: 20060202
  Receipt Date: 20051129
  Transmission Date: 20060701
  Serious: Yes (Death)
  Sender: FDA-Public Use
  Company Number: US-BRISTOL-MYERS SQUIBB COMPANY-13200084

PATIENT
  Age: 71 Year
  Sex: Male

DRUGS (11)
  1. COUMADIN [Suspect]
     Indication: ATRIAL FIBRILLATION
     Route: 048
     Dates: start: 20010101, end: 20051123
  2. NEXIUM [Concomitant]
  3. DILTIAZEM HCL [Concomitant]
  4. DIGITEK [Concomitant]
  5. AMARYL [Concomitant]
  6. ACTOS [Concomitant]
  7. ALDACTONE [Concomitant]
  8. ZOLOFT [Concomitant]
  9. BUSPAR [Concomitant]
  10. HYOSCYAMINE [Concomitant]
  11. OXYGEN [Concomitant]

REACTIONS (1)
  - CHRONIC RESPIRATORY FAILURE [None]
